FAERS Safety Report 17229558 (Version 1)
Quarter: 2020Q1

REPORT INFORMATION
  Report Type: Spontaneous
  Country: US (occurrence: US)
  Receive Date: 20200103
  Receipt Date: 20200103
  Transmission Date: 20200409
  Serious: Yes (Other)
  Sender: FDA-Public Use
  Company Number: US-BAYER-2019-224208

PATIENT
  Age: 3 Decade
  Sex: Female

DRUGS (1)
  1. ASPIRIN (PAIN AND FEVER) [Suspect]
     Active Substance: ASPIRIN
     Indication: HEADACHE
     Dosage: UNK

REACTIONS (4)
  - Anaphylactic shock [None]
  - Throat tightness [None]
  - Drug hypersensitivity [None]
  - Urticaria [None]
